FAERS Safety Report 12404108 (Version 1)
Quarter: 2016Q2

REPORT INFORMATION
  Report Type: Spontaneous
  Country: US (occurrence: US)
  Receive Date: 20160525
  Receipt Date: 20160525
  Transmission Date: 20160815
  Serious: No
  Sender: FDA-Public Use
  Company Number: US-SA-2015SA137600

PATIENT
  Age: 65 Year
  Sex: Male

DRUGS (1)
  1. ELOXATIN [Suspect]
     Active Substance: OXALIPLATIN
     Indication: COLON CANCER
     Dosage: FREQUENCY IS EVERY 2 WEEKS
     Route: 065
     Dates: start: 20150519

REACTIONS (1)
  - Hepatic enzyme increased [Not Recovered/Not Resolved]
